FAERS Safety Report 24675007 (Version 4)
Quarter: 2024Q4

REPORT INFORMATION
  Report Type: Spontaneous
  Country: GB (occurrence: GB)
  Receive Date: 20241128
  Receipt Date: 20241218
  Transmission Date: 20250115
  Serious: Yes (Other)
  Sender: MYLAN
  Company Number: GB-MYLANLABS-2024M1102263

PATIENT
  Age: 49 Year
  Sex: Female

DRUGS (1)
  1. CLOZARIL [Suspect]
     Active Substance: CLOZAPINE
     Indication: Schizophrenia
     Dosage: 350 MILLIGRAM, QD (DAILY IN DIVIDED DOSES, START DATE: 25-OCT-2024)
     Route: 048
     Dates: end: 20241120

REACTIONS (4)
  - Thrombocytopenia [Recovering/Resolving]
  - Eosinophilia [Recovered/Resolved]
  - Gastrointestinal disorder [Unknown]
  - Tachycardia [Unknown]

NARRATIVE: CASE EVENT DATE: 20240101
